FAERS Safety Report 7473888-8 (Version None)
Quarter: 2011Q2

REPORT INFORMATION
  Report Type: 
  Country: None (occurrence: None)
  Receive Date: 20110511
  Receipt Date: 20110509
  Transmission Date: 20111010
  Serious: Yes (Other)
  Sender: FDA-Public Use
  Company Number: BR-TEVA-280755USA

PATIENT
  Age: 37 Year
  Sex: Male
  Weight: 81 kg

DRUGS (2)
  1. ORAP [Suspect]
     Indication: PSYCHOTIC DISORDER
     Dates: start: 20010101
  2. LIDOCAINE [Concomitant]
     Indication: ANAESTHESIA
     Dates: start: 20110425

REACTIONS (3)
  - STOMATITIS [None]
  - APHTHOUS STOMATITIS [None]
  - HEADACHE [None]
